FAERS Safety Report 6761299-X (Version None)
Quarter: 2010Q2

REPORT INFORMATION
  Report Type: 
  Country: None (occurrence: None)
  Receive Date: 20100608
  Receipt Date: 20100531
  Transmission Date: 20101027
  Serious: Yes (Hospitalization)
  Sender: FDA-Public Use
  Company Number: DE-ABBOTT-10P-062-0648650-00

PATIENT
  Sex: Female

DRUGS (3)
  1. HUMIRA [Suspect]
     Indication: CROHN'S DISEASE
     Route: 058
     Dates: start: 20080515
  2. CORTISONE [Concomitant]
     Indication: CROHN'S DISEASE
     Dosage: UNK.
  3. METHOTREXAT [Concomitant]
     Indication: CROHN'S DISEASE
     Dosage: UNK.

REACTIONS (1)
  - MENORRHAGIA [None]
